FAERS Safety Report 15240916 (Version 1)
Quarter: 2018Q3

REPORT INFORMATION
  Report Type: Spontaneous
  Country: US (occurrence: US)
  Receive Date: 20180711
  Receipt Date: 20180711
  Transmission Date: 20181010
  Serious: Yes (Other)
  Sender: FDA-Public Use
  Company Number: None

PATIENT
  Age: 53 Year
  Sex: Female

DRUGS (13)
  1. RITUXAN [Concomitant]
     Active Substance: RITUXIMAB
  2. ASPIRIN. [Concomitant]
     Active Substance: ASPIRIN
  3. HIPREX [Concomitant]
     Active Substance: METHENAMINE HIPPURATE
  4. CLINDAMYCIN. [Concomitant]
     Active Substance: CLINDAMYCIN
  5. RIZATRIPTAN. [Concomitant]
     Active Substance: RIZATRIPTAN
  6. QUETIAPINE. [Concomitant]
     Active Substance: QUETIAPINE
  7. DIVALPROEX [Concomitant]
     Active Substance: DIVALPROEX SODIUM
  8. DARIFVENACIN [Concomitant]
  9. FISH OIL [Concomitant]
     Active Substance: FISH OIL
  10. AMPYRA [Suspect]
     Active Substance: DALFAMPRIDINE
     Indication: MULTIPLE SCLEROSIS
     Route: 048
  11. GABAPENTIN. [Concomitant]
     Active Substance: GABAPENTIN
  12. BACLOFEN. [Concomitant]
     Active Substance: BACLOFEN
  13. VITAMIN D3 [Concomitant]
     Active Substance: CHOLECALCIFEROL

REACTIONS (1)
  - Basal cell carcinoma [None]

NARRATIVE: CASE EVENT DATE: 20180703
